FAERS Safety Report 5086281-2 (Version None)
Quarter: 2006Q3

REPORT INFORMATION
  Report Type: 
  Country: None (occurrence: None)
  Receive Date: 20060703
  Receipt Date: 20051202
  Transmission Date: 20061208
  Serious: No
  Sender: FDA-Public Use
  Company Number: 2005S1011651

PATIENT
  Age: 50 Year
  Sex: Female

DRUGS (10)
  1. CLOZAPINE [Suspect]
     Indication: SCHIZOPHRENIA, PARANOID TYPE
     Dosage: 100 MG; BID; PO
     Route: 048
  2. NICOTINIC ACID [Concomitant]
  3. FENOFIBRATE [Concomitant]
  4. FLUOXETINE [Concomitant]
  5. HYDROCHLORIDE [Concomitant]
  6. DIAZEPAM [Concomitant]
  7. BENZTROPINE MESYLATE [Concomitant]
  8. PARACETAMOL/DEXTROPROPOXYPHENE NAPSILATE [Concomitant]
  9. TIOTIXENE [Concomitant]
  10. VALPROATE SODIUM [Concomitant]

REACTIONS (1)
  - GRANULOCYTOPENIA [None]
